FAERS Safety Report 5223348-X (Version None)
Quarter: 2007Q1

REPORT INFORMATION
  Report Type: 
  Country: None (occurrence: None)
  Receive Date: 20061201
  Receipt Date: 20060701
  Transmission Date: 20070707
  Serious: No
  Sender: FDA-Public Use
  Company Number: 2006PV016820

PATIENT
  Age: 55 Year
  Sex: Male

DRUGS (4)
  1. BYETTA [Suspect]
     Indication: DIABETES MELLITUS NON-INSULIN-DEPENDENT
     Dosage: 5 MCG BID SC
     Route: 058
     Dates: start: 20060401
  2. WELLBUTRIN [Concomitant]
  3. CONCERTA [Concomitant]
  4. LIPITOR [Concomitant]

REACTIONS (5)
  - ASTHENIA [None]
  - FEELING HOT [None]
  - HEART RATE INCREASED [None]
  - MUSCLE TWITCHING [None]
  - VERTIGO [None]
